FAERS Safety Report 8325680-X (Version None)
Quarter: 2012Q2

REPORT INFORMATION
  Report Type: 
  Country: None (occurrence: None)
  Receive Date: 20120501
  Receipt Date: 20120501
  Transmission Date: 20120825
  Serious: No
  Sender: FDA-Public Use
  Company Number: None

PATIENT
  Age: 82 Year
  Sex: Female
  Weight: 68.038 kg

DRUGS (1)
  1. CYMBALTA [Suspect]
     Indication: NEUROPATHY PERIPHERAL
     Route: 048
     Dates: start: 20120326, end: 20120327

REACTIONS (12)
  - ABDOMINAL PAIN UPPER [None]
  - APHASIA [None]
  - ASTHENIA [None]
  - HYPOPHAGIA [None]
  - PRURITUS [None]
  - INFLUENZA LIKE ILLNESS [None]
  - DECREASED APPETITE [None]
  - NAUSEA [None]
  - CONFUSIONAL STATE [None]
  - MALAISE [None]
  - DRY MOUTH [None]
  - WEIGHT DECREASED [None]
